FAERS Safety Report 6780344-9 (Version None)
Quarter: 2010Q2

REPORT INFORMATION
  Report Type: 
  Country: None (occurrence: None)
  Receive Date: 20100618
  Receipt Date: 20100611
  Transmission Date: 20101027
  Serious: Yes (Hospitalization, Other)
  Sender: FDA-Public Use
  Company Number: US-AMGEN-KDL418099

PATIENT
  Sex: Male

DRUGS (2)
  1. ENBREL [Suspect]
     Indication: PSORIASIS
     Route: 058
  2. DILANTIN [Concomitant]

REACTIONS (4)
  - EPILEPSY [None]
  - OEDEMA PERIPHERAL [None]
  - SKIN IRRITATION [None]
  - THROMBOSIS [None]
